FAERS Safety Report 25302581 (Version 2)
Quarter: 2025Q2

REPORT INFORMATION
  Report Type: Other
  Country: US (occurrence: US)
  Receive Date: 20250512
  Receipt Date: 20250630
  Transmission Date: 20250716
  Serious: No
  Sender: TRAVERE THERAPEUTICS
  Company Number: US-TRAVERE-2025TVT00568

PATIENT
  Sex: Male

DRUGS (2)
  1. FILSPARI [Suspect]
     Active Substance: SPARSENTAN
     Indication: IgA nephropathy
     Route: 048
  2. FILSPARI [Suspect]
     Active Substance: SPARSENTAN
     Route: 048

REACTIONS (6)
  - Peripheral swelling [None]
  - Joint swelling [Unknown]
  - Decreased appetite [None]
  - Fatigue [Unknown]
  - Asthenia [Unknown]
  - Off label use [Unknown]
